FAERS Safety Report 10885982 (Version 1)
Quarter: 2015Q1

REPORT INFORMATION
  Report Type: Spontaneous
  Country: US (occurrence: US)
  Receive Date: 20150304
  Receipt Date: 20150304
  Transmission Date: 20150721
  Serious: No
  Sender: FDA-Public Use
  Company Number: US-ELI_LILLY_AND_COMPANY-US201309007140

PATIENT
  Sex: Female

DRUGS (2)
  1. FORTEO [Suspect]
     Active Substance: TERIPARATIDE
     Indication: OSTEOPOROSIS
     Dosage: UNK, QD
     Dates: start: 20130911
  2. FORTEO [Suspect]
     Active Substance: TERIPARATIDE
     Indication: FRACTURE
     Dosage: UNK, QD
     Dates: start: 20130911

REACTIONS (2)
  - Bone pain [Not Recovered/Not Resolved]
  - Pain in extremity [Unknown]
